FAERS Safety Report 17343568 (Version 1)
Quarter: 2020Q1

REPORT INFORMATION
  Report Type: Spontaneous
  Country: JP (occurrence: JP)
  Receive Date: 20200129
  Receipt Date: 20200129
  Transmission Date: 20200409
  Serious: Yes (Other)
  Sender: FDA-Public Use
  Company Number: NVSJ2019JP006429

PATIENT
  Age: 44 Year
  Sex: Female

DRUGS (3)
  1. SANDOSTATINA LAR IM INJECTION [Suspect]
     Active Substance: OCTREOTIDE ACETATE
     Dosage: 30 MG
     Route: 030
     Dates: start: 20120524, end: 201701
  2. SOMAVERT [Concomitant]
     Active Substance: PEGVISOMANT
     Indication: ACROMEGALY
     Dosage: 30 MG
     Route: 065
  3. SANDOSTATINA LAR IM INJECTION [Suspect]
     Active Substance: OCTREOTIDE ACETATE
     Indication: ACROMEGALY
     Dosage: 30 MG, QMO
     Route: 030
     Dates: end: 201101

REACTIONS (2)
  - Weight increased [Unknown]
  - Diabetes mellitus [Recovering/Resolving]

NARRATIVE: CASE EVENT DATE: 20100826
